FAERS Safety Report 23481556 (Version 1)
Quarter: 2024Q1

REPORT INFORMATION
  Report Type: Spontaneous
  Country: CN (occurrence: CN)
  Receive Date: 20240205
  Receipt Date: 20240205
  Transmission Date: 20240410
  Serious: Yes (Life-Threatening, Hospitalization)
  Sender: FDA-Public Use
  Company Number: CN-BAYER-2024A019706

PATIENT
  Age: 73 Year
  Sex: Female
  Weight: 48.5 kg

DRUGS (3)
  1. GLUCOBAY [Interacting]
     Active Substance: ACARBOSE
     Indication: Diabetes mellitus
     Dosage: 50 MG, TID
     Route: 048
     Dates: end: 20240130
  2. INSULIN NOS [Interacting]
     Active Substance: INSULIN NOS
     Indication: Diabetes mellitus
     Dosage: MORNING 18U, NIGHT 16U
     Route: 058
     Dates: end: 20240124
  3. INSULIN NOS [Interacting]
     Active Substance: INSULIN NOS
     Indication: Diabetes mellitus
     Dosage: MORNING 18U, NIGHT 10U
     Route: 058
     Dates: start: 20240125, end: 20240130

REACTIONS (4)
  - Hypoglycaemic coma [Recovering/Resolving]
  - Confusional state [Recovered/Resolved]
  - Unresponsive to stimuli [None]
  - Hypoglycaemia [None]

NARRATIVE: CASE EVENT DATE: 20240129
